FAERS Safety Report 10100743 (Version 2)
Quarter: 2014Q2

REPORT INFORMATION
  Report Type: Spontaneous
  Country: US (occurrence: US)
  Receive Date: 20140423
  Receipt Date: 20140423
  Transmission Date: 20141212
  Serious: Yes (Other)
  Sender: FDA-Public Use
  Company Number: CHPA2014US004570

PATIENT
  Age: 71 Year
  Sex: Female

DRUGS (1)
  1. VOLTAREN GEL [Suspect]
     Indication: ARTHRALGIA
     Dosage: UNK UNK, ONCE/SINGLE
     Route: 061
     Dates: start: 20140326, end: 20140326

REACTIONS (8)
  - Swelling face [Recovered/Resolved]
  - Dyspnoea [Unknown]
  - Migraine [Recovered/Resolved]
  - Cough [Recovered/Resolved]
  - Urticaria [Unknown]
  - Hypersensitivity [Unknown]
  - Incorrect dose administered [Unknown]
  - Wrong technique in drug usage process [Unknown]
